FAERS Safety Report 14750561 (Version 4)
Quarter: 2018Q3

REPORT INFORMATION
  Report Type: Report from Study
  Country: GB (occurrence: GB)
  Receive Date: 20180412
  Receipt Date: 20180903
  Transmission Date: 20181010
  Serious: Yes (Death, Other)
  Sender: FDA-Public Use
  Company Number: GB-BRISTOL-MYERS SQUIBB COMPANY-BMS-2018-033359

PATIENT
  Age: 46 Year
  Sex: Male

DRUGS (1)
  1. NIVOLUMAB [Suspect]
     Active Substance: NIVOLUMAB
     Indication: SQUAMOUS CELL CARCINOMA OF THE TONGUE
     Dosage: UNK
     Route: 065
     Dates: start: 20171227

REACTIONS (2)
  - Death [Fatal]
  - Liver disorder [Unknown]
